FAERS Safety Report 15004080 (Version 2)
Quarter: 2018Q2

REPORT INFORMATION
  Report Type: Spontaneous
  Country: AU (occurrence: AU)
  Receive Date: 20180613
  Receipt Date: 20180614
  Transmission Date: 20180711
  Serious: Yes (Life-Threatening, Hospitalization, Other)
  Sender: FDA-Public Use
  Company Number: AU-ALKEM LABORATORIES LIMITED-AU-ALKEM-2018-03882

PATIENT
  Age: 13 Year
  Sex: Female

DRUGS (3)
  1. RIVAROXABAN [Suspect]
     Active Substance: RIVAROXABAN
     Indication: PRODUCT USED FOR UNKNOWN INDICATION
     Dosage: 420 MG, UNK
     Route: 065
  2. QUETIAPINE FUMARATE. [Suspect]
     Active Substance: QUETIAPINE FUMARATE
     Indication: PRODUCT USED FOR UNKNOWN INDICATION
     Dosage: 42 G, UNK
     Route: 048
  3. CITALOPRAM [Suspect]
     Active Substance: CITALOPRAM HYDROBROMIDE
     Indication: PRODUCT USED FOR UNKNOWN INDICATION
     Dosage: 540 MG, UNK
     Route: 048

REACTIONS (3)
  - Ileus [Unknown]
  - Overdose [Unknown]
  - Toxicity to various agents [Unknown]
